FAERS Safety Report 5412856-4 (Version None)
Quarter: 2007Q3

REPORT INFORMATION
  Report Type: 
  Country: None (occurrence: None)
  Receive Date: 20070809
  Receipt Date: 20070801
  Transmission Date: 20080115
  Serious: Yes (Other)
  Sender: FDA-Public Use
  Company Number: US-GDP-0715185

PATIENT
  Age: 50 Year
  Sex: Male
  Weight: 113.3993 kg

DRUGS (1)
  1. CLOBETASOL PROPIONATE [Suspect]
     Indication: PSORIASIS
     Dosage: 1 APP BID TP
     Route: 061
     Dates: start: 20070727, end: 20070731

REACTIONS (6)
  - DEVICE MALFUNCTION [None]
  - NO REACTION ON PREVIOUS EXPOSURE TO DRUG [None]
  - PAIN IN EXTREMITY [None]
  - PHARMACEUTICAL PRODUCT COMPLAINT [None]
  - SKIN DISORDER [None]
  - THERMAL BURN [None]
